FAERS Safety Report 8798980 (Version 1)
Quarter: 2012Q4

REPORT INFORMATION
  Report Type: Spontaneous
  Country: US (occurrence: None)
  Receive Date: 20120913
  Receipt Date: 20120913
  Transmission Date: 20130627
  Serious: Yes (Hospitalization)
  Sender: FDA-Public Use
  Company Number: DSA_59496_2012

PATIENT
  Age: 47 Year
  Sex: Male

DRUGS (7)
  1. XENAZINE 12.5 MG (NOT SPECIFIED) [Suspect]
     Indication: HUNTINGTON^S DISEASE
     Route: 048
     Dates: start: 20090114, end: 20120817
  2. BENZONATATE [Concomitant]
  3. ZYRTEC [Concomitant]
  4. AMANTADINE [Concomitant]
  5. VITAMINS E [Concomitant]
  6. ALPRAZOLAM [Concomitant]
  7. FLUOXETINE [Concomitant]

REACTIONS (1)
  - Terminal state [None]
